FAERS Safety Report 4551386-9 (Version None)
Quarter: 2005Q1

REPORT INFORMATION
  Report Type: 
  Country: None (occurrence: None)
  Receive Date: 20050111
  Receipt Date: 20050111
  Transmission Date: 20050727
  Serious: Yes (Death, Hospitalization)
  Sender: FDA-Public Use
  Company Number: None

PATIENT
  Age: 75 Year
  Sex: Female

DRUGS (10)
  1. CAMPATH [Suspect]
     Indication: WALDENSTROM'S MACROGLOBULINAEMIA
     Dosage: 30MG   M-W-F   INTRAVENOU
     Route: 042
     Dates: start: 20040823, end: 20040927
  2. TAMOXIFEN CITRATE [Concomitant]
  3. DAMSONE [Concomitant]
  4. FAMCICLOVIR [Concomitant]
  5. DIPHENHYDRAMIN HCL [Concomitant]
  6. METHYLPREDNISOLONE SOD. SUCC. [Concomitant]
  7. ACETAMINOPHEN [Concomitant]
  8. HYDROCORTISONE SOD. SUCC. [Concomitant]
  9. CIMETIDINE [Concomitant]
  10. RANITIDINE HCL [Concomitant]

REACTIONS (8)
  - CONDITION AGGRAVATED [None]
  - COUGH [None]
  - CYTOMEGALOVIRUS INFECTION [None]
  - DIFFUSE ALVEOLAR DAMAGE [None]
  - GASTROENTERITIS VIRAL [None]
  - HYPOXIA [None]
  - LUNG INFECTION [None]
  - PANCYTOPENIA [None]
